FAERS Safety Report 19272490 (Version 1)
Quarter: 2021Q2

REPORT INFORMATION
  Report Type: Spontaneous
  Country: DE (occurrence: DE)
  Receive Date: 20210518
  Receipt Date: 20210518
  Transmission Date: 20210717
  Serious: Yes (Disabling)
  Sender: FDA-Public Use
  Company Number: NVSC2021DE096909

PATIENT
  Sex: Female

DRUGS (3)
  1. NORFLOXACIN [Suspect]
     Active Substance: NORFLOXACIN
     Indication: PRODUCT USED FOR UNKNOWN INDICATION
     Dosage: UNK
     Route: 065
  2. TAVANIC [Suspect]
     Active Substance: LEVOFLOXACIN
     Indication: PRODUCT USED FOR UNKNOWN INDICATION
     Dosage: UNK
     Route: 065
     Dates: end: 2006
  3. CIPROFLOXACIN. [Suspect]
     Active Substance: CIPROFLOXACIN
     Indication: PRODUCT USED FOR UNKNOWN INDICATION
     Dosage: UNK
     Route: 065
     Dates: end: 20121210

REACTIONS (18)
  - Cardiac disorder [Not Recovered/Not Resolved]
  - Disability [Not Recovered/Not Resolved]
  - Depression [Not Recovered/Not Resolved]
  - Selenium deficiency [Unknown]
  - Tendon disorder [Not Recovered/Not Resolved]
  - Vitamin D deficiency [Unknown]
  - Insulin resistance [Unknown]
  - Oxidative stress [Unknown]
  - Gluten sensitivity [Unknown]
  - Dysbiosis [Unknown]
  - Neurotoxicity [Not Recovered/Not Resolved]
  - Gastrointestinal disorder [Unknown]
  - Hormone level abnormal [Unknown]
  - Manganese decreased [Unknown]
  - Metabolic disorder [Unknown]
  - Glucose tolerance impaired [Unknown]
  - Glutathione synthetase deficiency [Unknown]
  - Sleep disorder [Not Recovered/Not Resolved]
